FAERS Safety Report 8497543-0 (Version None)
Quarter: 2012Q3

REPORT INFORMATION
  Report Type: 
  Country: None (occurrence: None)
  Receive Date: 20120709
  Receipt Date: 20120613
  Transmission Date: 20120928
  Serious: No
  Sender: FDA-Public Use
  Company Number: US-AMGEN-USASP2012029350

PATIENT
  Age: 46 Year
  Sex: Female

DRUGS (2)
  1. ENBREL [Suspect]
     Indication: PSORIASIS
  2. ENBREL [Suspect]
     Indication: PSORIATIC ARTHROPATHY
     Dosage: 50 MG, QWK
     Dates: start: 20110401, end: 20120528

REACTIONS (5)
  - SWELLING FACE [None]
  - RASH ERYTHEMATOUS [None]
  - AURICULAR SWELLING [None]
  - RASH PRURITIC [None]
  - HYPERSENSITIVITY [None]
